FAERS Safety Report 4895281-4 (Version None)
Quarter: 2005Q4

REPORT INFORMATION
  Report Type: 
  Country: None (occurrence: None)
  Receive Date: 20051220
  Receipt Date: 20050627
  Transmission Date: 20060501
  Serious: Yes (Other)
  Sender: FDA-Public Use
  Company Number: US138636

PATIENT
  Age: 44 Year
  Sex: Female
  Weight: 56.3 kg

DRUGS (5)
  1. ENBREL [Suspect]
     Indication: RHEUMATOID ARTHRITIS
     Dosage: 25 MG, 2 IN 1 WEEKS, SC
     Route: 058
     Dates: start: 20030101, end: 20050425
  2. LEFLUNOMIDE [Suspect]
     Dosage: 30 MG, 1 IN 1 DAYS
     Dates: start: 20020101, end: 20050425
  3. HYDROXYCHLOROQUINE SULFATE [Concomitant]
  4. PREDNISONE [Concomitant]
  5. UNSPECIFIED MEDICATION [Concomitant]

REACTIONS (1)
  - NON-HODGKIN'S LYMPHOMA [None]
